FAERS Safety Report 13641835 (Version 1)
Quarter: 2017Q2

REPORT INFORMATION
  Report Type: Spontaneous
  Country: US (occurrence: US)
  Receive Date: 20170609
  Receipt Date: 20170609
  Transmission Date: 20170830
  Serious: Yes (Hospitalization)
  Sender: FDA-Public Use
  Company Number: None

PATIENT
  Age: 80 Year
  Sex: Male
  Weight: 84 kg

DRUGS (1)
  1. RITUXIMAB [Suspect]
     Active Substance: RITUXIMAB
     Indication: NON-HODGKIN^S LYMPHOMA
     Route: 042
     Dates: start: 20170509, end: 20170509

REACTIONS (12)
  - Loss of consciousness [None]
  - Pyrexia [None]
  - Thrombocytopenia [None]
  - Syncope [None]
  - Feeling cold [None]
  - Tremor [None]
  - Chills [None]
  - Vomiting [None]
  - Infusion related reaction [None]
  - Hypoxia [None]
  - Nausea [None]
  - Aspiration [None]

NARRATIVE: CASE EVENT DATE: 20170509
